FAERS Safety Report 4558630-2 (Version None)
Quarter: 2005Q1

REPORT INFORMATION
  Report Type: 
  Country: None (occurrence: None)
  Receive Date: 20050119
  Receipt Date: 20050107
  Transmission Date: 20050727
  Serious: Yes (Hospitalization)
  Sender: FDA-Public Use
  Company Number: 001-0981-M0000606

PATIENT
  Age: 67 Year
  Sex: Male
  Weight: 79.9 kg

DRUGS (13)
  1. ATORVASTATIN (ATORVASTATIN) [Suspect]
     Indication: HYPERLIPIDAEMIA
     Dosage: SEE IMAGE
     Route: 048
     Dates: start: 19990524, end: 19990720
  2. ATORVASTATIN (ATORVASTATIN) [Suspect]
     Indication: HYPERLIPIDAEMIA
     Dosage: SEE IMAGE
     Route: 048
     Dates: start: 19990721
  3. WARFARIN SODIUM [Concomitant]
  4. METFORMIN HCL [Concomitant]
  5. GLYBURIDE [Concomitant]
  6. DIGOXIN [Concomitant]
  7. ZINC (ZINC) [Concomitant]
  8. VITAMIN E [Concomitant]
  9. CLOPIDOGREL BISULFATE [Concomitant]
  10. NITROGLYCERIN [Concomitant]
  11. DILITAZEM (DILTIAZEM) [Concomitant]
  12. ENALAPRIL MALEATE [Concomitant]
  13. METOPROLOL TARTRATE [Concomitant]

REACTIONS (1)
  - ATRIAL FIBRILLATION [None]
